FAERS Safety Report 10422738 (Version 1)
Quarter: 2014Q3

REPORT INFORMATION
  Report Type: Spontaneous
  Country: CH (occurrence: CH)
  Receive Date: 20140902
  Receipt Date: 20140902
  Transmission Date: 20150326
  Serious: Yes (Other)
  Sender: FDA-Public Use
  Company Number: CH-ROCHE-1456429

PATIENT
  Age: 61 Year
  Sex: Male

DRUGS (7)
  1. 3TC [Concomitant]
     Active Substance: LAMIVUDINE
  2. CELLCEPT [Suspect]
     Active Substance: MYCOPHENOLATE MOFETIL\MYCOPHENOLATE MOFETIL HYDROCHLORIDE
     Indication: PRODUCT USED FOR UNKNOWN INDICATION
     Dosage: 1 DF
     Route: 048
     Dates: start: 2013, end: 20140220
  3. MICARDIS [Concomitant]
     Active Substance: TELMISARTAN
  4. CERTICAN [Concomitant]
     Active Substance: EVEROLIMUS
     Indication: PRODUCT USED FOR UNKNOWN INDICATION
     Route: 048
  5. DIAMICRON [Concomitant]
     Active Substance: GLICLAZIDE
  6. CRESTOR [Concomitant]
     Active Substance: ROSUVASTATIN CALCIUM
  7. METFIN [Concomitant]
     Active Substance: METFORMIN HYDROCHLORIDE

REACTIONS (2)
  - Haemorrhagic anaemia [Recovering/Resolving]
  - Gastrointestinal angiodysplasia haemorrhagic [Recovering/Resolving]

NARRATIVE: CASE EVENT DATE: 201402
